FAERS Safety Report 10420689 (Version 1)
Quarter: 2014Q3

REPORT INFORMATION
  Report Type: Spontaneous
  Country: US (occurrence: None)
  Receive Date: 20140829
  Receipt Date: 20140829
  Transmission Date: 20150326
  Serious: No
  Sender: FDA-Public Use
  Company Number: None

PATIENT
  Age: 52 Year
  Sex: Female
  Weight: 68.04 kg

DRUGS (1)
  1. DOXYCYCLINE. [Suspect]
     Active Substance: DOXYCYCLINE
     Indication: URINARY TRACT INFECTION
     Dosage: 2  TWICE DAILY TAKEN BY MOUTH
     Route: 048
     Dates: start: 20140812, end: 20140821

REACTIONS (3)
  - No therapeutic response [None]
  - Sunburn [None]
  - Physical product label issue [None]

NARRATIVE: CASE EVENT DATE: 20140817
